FAERS Safety Report 8620502-1 (Version None)
Quarter: 2012Q3

REPORT INFORMATION
  Report Type: 
  Country: None (occurrence: None)
  Receive Date: 20120824
  Receipt Date: 20120816
  Transmission Date: 20120928
  Serious: Yes (Other)
  Sender: FDA-Public Use
  Company Number: JP-BRISTOL-MYERS SQUIBB COMPANY-16865008

PATIENT
  Age: 66 Year
  Sex: Male

DRUGS (4)
  1. REYATAZ [Suspect]
     Indication: HIV INFECTION
     Route: 048
     Dates: start: 20060915
  2. DEPAKENE [Concomitant]
     Indication: CONVULSION PROPHYLAXIS
     Route: 048
     Dates: start: 20060606
  3. NORVIR [Suspect]
     Indication: HIV INFECTION
     Route: 048
     Dates: start: 20060915
  4. EPZICOM [Suspect]
     Indication: HIV INFECTION
     Dosage: 1DF: 1TAB
     Route: 048
     Dates: start: 20070627

REACTIONS (1)
  - GLOMERULONEPHRITIS CHRONIC [None]
